FAERS Safety Report 23813611 (Version 1)
Quarter: 2024Q2

REPORT INFORMATION
  Report Type: Spontaneous
  Country: US (occurrence: None)
  Receive Date: 20240502
  Receipt Date: 20240502
  Transmission Date: 20240715
  Serious: Yes (Hospitalization)
  Sender: FDA-Public Use
  Company Number: None

PATIENT
  Age: 76 Year
  Sex: Male

DRUGS (1)
  1. BENZONATATE [Suspect]
     Active Substance: BENZONATATE
     Dosage: FREQUENCY : 3 TIMES A DAY;?
     Route: 048
     Dates: start: 20231209, end: 20231212

REACTIONS (4)
  - Anaphylactic reaction [None]
  - Ear pain [None]
  - Tinnitus [None]
  - Gait disturbance [None]

NARRATIVE: CASE EVENT DATE: 20231212
